FAERS Safety Report 4641057-2 (Version None)
Quarter: 2005Q2

REPORT INFORMATION
  Report Type: 
  Country: None (occurrence: None)
  Receive Date: 20050421
  Receipt Date: 20050408
  Transmission Date: 20051028
  Serious: Yes (Other)
  Sender: FDA-Public Use
  Company Number: IT-JNJFOC-20050306474

PATIENT
  Age: 42 Year
  Sex: Male

DRUGS (2)
  1. INFLIXIMAB [Suspect]
     Indication: RHEUMATOID ARTHRITIS
     Dosage: 4 INFUSIONS
     Route: 042
  2. METHOTREXATE [Concomitant]
     Dosage: 7.5-10 MG PER WEEK

REACTIONS (2)
  - HYPEREOSINOPHILIC SYNDROME [None]
  - URTICARIA GENERALISED [None]
